FAERS Safety Report 18002317 (Version 3)
Quarter: 2020Q3

REPORT INFORMATION
  Report Type: Spontaneous
  Country: PL (occurrence: PL)
  Receive Date: 20200709
  Receipt Date: 20200805
  Transmission Date: 20201103
  Serious: Yes (Other)
  Sender: FDA-Public Use
  Company Number: PL-TEVA-2020-PL-1799489

PATIENT
  Sex: Male

DRUGS (15)
  1. GAZYVARO [Suspect]
     Active Substance: OBINUTUZUMAB
     Dosage: CYCLIC (2ND LINE TREATMENT, CYCLE 4)
     Route: 042
     Dates: start: 20200506
  2. BENDAMUSTINE HYDROCHLORIDE. [Suspect]
     Active Substance: BENDAMUSTINE HYDROCHLORIDE
     Dosage: (2ND LINE TREATMENT, CYCLE 4)
     Route: 042
     Dates: start: 20200506
  3. CYCLOPHOSPHAMIDE. [Suspect]
     Active Substance: CYCLOPHOSPHAMIDE
     Indication: B-CELL LYMPHOMA
     Dosage: . (1ST LINE TREATMENT)
     Route: 065
     Dates: start: 20191008
  4. GAZYVARO [Suspect]
     Active Substance: OBINUTUZUMAB
     Indication: B-CELL LYMPHOMA
     Dosage: (2ND LINE TREATMENT)
     Route: 042
     Dates: start: 20200131
  5. GAZYVARO [Suspect]
     Active Substance: OBINUTUZUMAB
     Dosage: CYCLIC (2ND LINE TREATMENT, CYCLE 2)
     Route: 042
     Dates: start: 20200228
  6. GAZYVARO [Suspect]
     Active Substance: OBINUTUZUMAB
     Dosage: CYCLIC (2ND LINE TREATMENT, CYCLE 3)
     Route: 042
     Dates: start: 20200330
  7. DOXORUBICIN HYDROCHLORIDE. [Suspect]
     Active Substance: DOXORUBICIN HYDROCHLORIDE
     Indication: B-CELL LYMPHOMA
     Dosage: (1ST LINE TREATMENT)
     Route: 065
     Dates: start: 20191008
  8. GAZYVARO [Suspect]
     Active Substance: OBINUTUZUMAB
     Dosage: CYCLIC (2ND LINE TREATMENT, CYCLE 5)
     Route: 042
     Dates: start: 20200609
  9. BENDAMUSTINE HYDROCHLORIDE. [Suspect]
     Active Substance: BENDAMUSTINE HYDROCHLORIDE
     Dosage: (2ND LINE TREATMENT, CYCLE 3)
     Route: 042
     Dates: start: 20200330
  10. VINCRISTINE [Suspect]
     Active Substance: VINCRISTINE
     Indication: B-CELL LYMPHOMA
     Dosage: (1ST LINE TREATMENT)
     Route: 065
     Dates: start: 20191008
  11. PREDNISOLONE. [Suspect]
     Active Substance: PREDNISOLONE
     Indication: B-CELL LYMPHOMA
     Dosage: (1ST LINE TREATMENT)
     Route: 065
     Dates: start: 20191008
  12. BENDAMUSTINE HYDROCHLORIDE. [Suspect]
     Active Substance: BENDAMUSTINE HYDROCHLORIDE
     Dosage: (2ND LINE TREATMENT, CYCLE 2)
     Route: 042
     Dates: start: 20200228
  13. BENDAMUSTINE HYDROCHLORIDE. [Suspect]
     Active Substance: BENDAMUSTINE HYDROCHLORIDE
     Dosage: (2ND LINE TREATMENT, CYCLE 5)
     Route: 042
     Dates: start: 20200609
  14. BENDAMUSTINE HYDROCHLORIDE. [Suspect]
     Active Substance: BENDAMUSTINE HYDROCHLORIDE
     Indication: B-CELL LYMPHOMA
     Dosage: (2ND LINE TREATMENT)
     Route: 042
     Dates: start: 20200131
  15. MABTHERA [Suspect]
     Active Substance: RITUXIMAB
     Indication: B-CELL LYMPHOMA
     Dosage: (1ST LINE TREATMENT)
     Route: 065
     Dates: start: 20191008

REACTIONS (5)
  - Feeling cold [Recovered/Resolved]
  - Granulocytopenia [Unknown]
  - Neutropenia [Unknown]
  - Drug resistance [Unknown]
  - Product use issue [Unknown]

NARRATIVE: CASE EVENT DATE: 2020
